FAERS Safety Report 10944110 (Version 1)
Quarter: 2015Q1

REPORT INFORMATION
  Report Type: Spontaneous
  Country: RU (occurrence: None)
  Receive Date: 20150318
  Receipt Date: 20150318
  Transmission Date: 20150721
  Serious: No
  Sender: FDA-Public Use
  Company Number: Z0010751A

PATIENT
  Age: 34 Year
  Sex: Female
  Weight: 48.5 kg

DRUGS (2)
  1. DOLUTEGRAVIR (DOLUTEGRAVIR) TABLET [Suspect]
     Active Substance: DOLUTEGRAVIR
     Indication: HIV INFECTION
     Route: 048
     Dates: start: 20110209, end: 20110725
  2. KIVEXA (ABACAVIR + LAMIVUDINE) [Concomitant]

REACTIONS (1)
  - Hepatitis [None]

NARRATIVE: CASE EVENT DATE: 20110725
